FAERS Safety Report 26178784 (Version 1)
Quarter: 2025Q4

REPORT INFORMATION
  Report Type: Spontaneous
  Country: EU (occurrence: EU)
  Receive Date: 20251219
  Receipt Date: 20251219
  Transmission Date: 20260118
  Serious: Yes (Other)
  Sender: AUROBINDO
  Company Number: EU-AEMPS-1787377

PATIENT
  Age: 81 Year
  Sex: Male
  Weight: 93 kg

DRUGS (5)
  1. MEROPENEM [Interacting]
     Active Substance: MEROPENEM
     Indication: Cholangitis acute
     Dosage: 1 GRAM, TWO TIMES A DAY
     Dates: start: 20251029, end: 20251112
  2. PIPERACILLIN SODIUM\TAZOBACTAM SODIUM [Interacting]
     Active Substance: PIPERACILLIN SODIUM\TAZOBACTAM SODIUM
     Indication: Cholangitis acute
     Dosage: 4 GRAM, CYCLICAL
     Dates: start: 20251029, end: 20251112
  3. METRONIDAZOLE [Interacting]
     Active Substance: METRONIDAZOLE
     Indication: Cholangitis acute
     Dosage: 500 MILLIGRAM, 3 TIMES A DAY
     Route: 061
     Dates: start: 20251029, end: 20251112
  4. AMIKACIN SULFATE [Interacting]
     Active Substance: AMIKACIN SULFATE
     Indication: Cholangitis acute
     Dosage: 1.5 GRAM, ONCE A DAY
     Dates: start: 20251029, end: 20251112
  5. OMEPRAZOL SODICO (2141SO) [Concomitant]
     Indication: Gastritis
     Dosage: 20 MILLIGRAM, ONCE A DAY
     Route: 061
     Dates: start: 20251102

REACTIONS (1)
  - Pseudomembranous colitis [Recovered/Resolved]

NARRATIVE: CASE EVENT DATE: 20251112
